FAERS Safety Report 9822735 (Version 2)
Quarter: 2014Q1

REPORT INFORMATION
  Report Type: Spontaneous
  Country: US (occurrence: US)
  Receive Date: 20140116
  Receipt Date: 20140116
  Transmission Date: 20141002
  Serious: No
  Sender: FDA-Public Use
  Company Number: US-ALLERGAN-1301816US

PATIENT
  Sex: Female

DRUGS (1)
  1. PRED MILD [Suspect]
     Indication: PRODUCT USED FOR UNKNOWN INDICATION
     Dosage: 2 GTT, QD
     Route: 047

REACTIONS (2)
  - Ocular hyperaemia [Unknown]
  - Eye irritation [Unknown]
